FAERS Safety Report 16754534 (Version 2)
Quarter: 2019Q4

REPORT INFORMATION
  Report Type: Spontaneous
  Country: US (occurrence: US)
  Receive Date: 20190829
  Receipt Date: 20191126
  Transmission Date: 20200122
  Serious: Yes (Other)
  Sender: FDA-Public Use
  Company Number: US-PFIZER INC-2019370542

PATIENT
  Age: 53 Year
  Sex: Male
  Weight: 65.77 kg

DRUGS (3)
  1. PREGABALIN. [Suspect]
     Active Substance: PREGABALIN
     Indication: NEURALGIA
     Dosage: UNK, 3X/DAY
  2. KEPPRA [Concomitant]
     Active Substance: LEVETIRACETAM
     Indication: ANXIETY
  3. KEPPRA [Concomitant]
     Active Substance: LEVETIRACETAM
     Indication: SEIZURE
     Dosage: 10 MG, UNK

REACTIONS (7)
  - Weight decreased [Unknown]
  - Syncope [Unknown]
  - Dizziness [Unknown]
  - Abdominal discomfort [Unknown]
  - Malaise [Recovering/Resolving]
  - Chest pain [Unknown]
  - Decreased appetite [Unknown]
